FAERS Safety Report 5483859-9 (Version None)
Quarter: 2007Q4

REPORT INFORMATION
  Report Type: 
  Country: None (occurrence: None)
  Receive Date: 20071010
  Receipt Date: 20071010
  Transmission Date: 20080405
  Serious: Yes (Other)
  Sender: FDA-Public Use
  Company Number: None

PATIENT
  Age: 45 Year
  Sex: Female
  Weight: 54.4316 kg

DRUGS (1)
  1. SERTRALINE [Suspect]
     Indication: DEPRESSED MOOD
     Dates: start: 20060912, end: 20070924

REACTIONS (1)
  - UNEVALUABLE EVENT [None]
